FAERS Safety Report 7563494-9 (Version None)
Quarter: 2011Q2

REPORT INFORMATION
  Report Type: 
  Country: None (occurrence: None)
  Receive Date: 20110622
  Receipt Date: 20110615
  Transmission Date: 20111010
  Serious: Yes (Other)
  Sender: FDA-Public Use
  Company Number: TR-ABBOTT-11P-161-0732525-00

PATIENT
  Age: 65 Year
  Sex: Female
  Weight: 70 kg

DRUGS (3)
  1. TARKA [Suspect]
     Indication: HYPERTENSION
     Dosage: 180/2MG X 1
     Route: 048
     Dates: start: 20110606, end: 20110610
  2. NOVORAPID [Concomitant]
     Indication: DIABETES MELLITUS
  3. LANTUS [Concomitant]
     Indication: DIABETES MELLITUS

REACTIONS (2)
  - HYPERSENSITIVITY [None]
  - URTICARIA [None]
